FAERS Safety Report 4973446-0 (Version None)
Quarter: 2006Q2

REPORT INFORMATION
  Report Type: 
  Country: None (occurrence: None)
  Receive Date: 20060413
  Receipt Date: 20060413
  Transmission Date: 20061013
  Serious: Yes (Hospitalization)
  Sender: FDA-Public Use
  Company Number: None

PATIENT
  Age: 18 Year
  Sex: Female
  Weight: 57.6 kg

DRUGS (8)
  1. FLUOXETINE [Suspect]
     Indication: DEPRESSION
     Dosage: 30 MG PO DAILY
     Route: 048
  2. SEROQUEL [Suspect]
     Indication: INSOMNIA
     Dosage: 25 MG 2-4 PRN INSOMNIA
     Dates: start: 20051201
  3. YASMIN [Concomitant]
  4. FLUOXETINE [Concomitant]
  5. SEROQUEL [Concomitant]
  6. BENADRYL [Concomitant]
  7. CLARITIN [Concomitant]
  8. ZOFRAN [Concomitant]

REACTIONS (18)
  - AGITATION [None]
  - BALANCE DISORDER [None]
  - DYSARTHRIA [None]
  - DYSKINESIA [None]
  - HEADACHE [None]
  - HYPERTENSION [None]
  - LIVER FUNCTION TEST ABNORMAL [None]
  - LOSS OF CONSCIOUSNESS [None]
  - MUSCLE RIGIDITY [None]
  - NAUSEA [None]
  - NEUROLEPTIC MALIGNANT SYNDROME [None]
  - PRURITUS [None]
  - RASH [None]
  - RESTLESSNESS [None]
  - RHABDOMYOLYSIS [None]
  - SEROTONIN SYNDROME [None]
  - SOMNOLENCE [None]
  - VOMITING [None]
